FAERS Safety Report 4944611-3 (Version None)
Quarter: 2006Q1

REPORT INFORMATION
  Report Type: 
  Country: None (occurrence: None)
  Receive Date: 20060315
  Receipt Date: 20060306
  Transmission Date: 20060701
  Serious: Yes (Life-Threatening, Other)
  Sender: FDA-Public Use
  Company Number: US-JNJFOC-20051101871

PATIENT
  Sex: Female
  Weight: 67 kg

DRUGS (20)
  1. REMICADE [Suspect]
     Indication: RHEUMATOID ARTHRITIS
     Dosage: RECEIVED 22 INFUSIONS
     Route: 042
  2. PLAQUENIL [Concomitant]
     Indication: RHEUMATOID ARTHRITIS
     Dosage: STARTED PRE-2002
  3. METHOTREXATE [Concomitant]
     Indication: RHEUMATOID ARTHRITIS
     Dosage: STARTED PRE-2002, DOSE 7.5-10MG/WEEK
  4. DISALCID [Concomitant]
     Indication: RHEUMATOID ARTHRITIS
     Dosage: STARTED PRE-2002
  5. FOLIC ACID [Concomitant]
  6. IRON [Concomitant]
  7. M.V.I. [Concomitant]
  8. M.V.I. [Concomitant]
  9. M.V.I. [Concomitant]
  10. M.V.I. [Concomitant]
  11. M.V.I. [Concomitant]
  12. M.V.I. [Concomitant]
  13. M.V.I. [Concomitant]
  14. M.V.I. [Concomitant]
  15. VERELAN [Concomitant]
     Dosage: STARTED PRE-2002
  16. PREVACID [Concomitant]
  17. COLACE [Concomitant]
  18. SULFASALAZINE [Concomitant]
     Indication: RHEUMATOID ARTHRITIS
     Dosage: STARTED PRE-2002
  19. DYAZIDE [Concomitant]
  20. DYAZIDE [Concomitant]
     Dosage: STARTED PRE-2002

REACTIONS (1)
  - B-CELL LYMPHOMA [None]
